FAERS Safety Report 14703137 (Version 1)
Quarter: 2018Q2

REPORT INFORMATION
  Report Type: Spontaneous
  Country: PT (occurrence: PT)
  Receive Date: 20180402
  Receipt Date: 20180402
  Transmission Date: 20180711
  Serious: Yes (Hospitalization)
  Sender: FDA-Public Use
  Company Number: PT-ACCORD-065070

PATIENT
  Age: 51 Year
  Sex: Female

DRUGS (5)
  1. FOLINIC ACID [Suspect]
     Active Substance: LEUCOVORIN
     Indication: ADENOCARCINOMA OF COLON
  2. FLUOROURACIL. [Suspect]
     Active Substance: FLUOROURACIL
     Indication: ADENOCARCINOMA OF COLON
     Dosage: DOSE: 400 MG/M2+2400 MG/M2 EVERY 15 DAYS ?46 HOURS CONTINUOUS INFUSION
  3. OXALIPLATIN. [Suspect]
     Active Substance: OXALIPLATIN
     Indication: ADENOCARCINOMA OF COLON
     Dosage: EVERY 15 DAYS
  4. ALLOPURINOL. [Suspect]
     Active Substance: ALLOPURINOL
     Indication: TUMOUR LYSIS SYNDROME
  5. CETUXIMAB. [Concomitant]
     Active Substance: CETUXIMAB

REACTIONS (4)
  - Hypersensitivity vasculitis [Recovered/Resolved]
  - Nausea [Recovered/Resolved]
  - Tumour lysis syndrome [Recovered/Resolved]
  - Asthenia [Unknown]
